FAERS Safety Report 7462620-X (Version None)
Quarter: 2011Q1

REPORT INFORMATION
  Report Type: 
  Country: None (occurrence: None)
  Receive Date: 20110302
  Receipt Date: 20101221
  Transmission Date: 20110831
  Serious: Yes (Hospitalization, Other)
  Sender: FDA-Public Use
  Company Number: 163-21880-10071082

PATIENT
  Age: 76 Year
  Sex: Male

DRUGS (9)
  1. REVLIMID [Suspect]
     Indication: MULTIPLE MYELOMA
     Dosage: 10 MG, 3 WEEKS ON/1 WEEK OFF, PO
     Route: 048
     Dates: start: 20090821
  2. BLOOD TRANSFUSION (BLOOD TRANSFUSION, AUXILIARY PRODUCTS) [Concomitant]
  3. DIGOXIN [Concomitant]
  4. AMLODIPINE [Concomitant]
  5. WARFARIN (WARFARIN) [Concomitant]
  6. NEURONTIN [Concomitant]
  7. LASIX [Concomitant]
  8. DEXAMETHASONE [Concomitant]
  9. LEVOTHYROXINE 9LEVOTHYROXINE) [Concomitant]

REACTIONS (6)
  - CHOLELITHIASIS [None]
  - PNEUMONIA [None]
  - FULL BLOOD COUNT DECREASED [None]
  - FALL [None]
  - CHOLECYSTITIS [None]
  - PANCREATITIS [None]
